FAERS Safety Report 17902855 (Version 1)
Quarter: 2020Q2

REPORT INFORMATION
  Report Type: Spontaneous
  Country: FR (occurrence: FR)
  Receive Date: 20200616
  Receipt Date: 20200616
  Transmission Date: 20200714
  Serious: Yes (Death, Congenital Anomaly, Other)
  Sender: FDA-Public Use
  Company Number: NVSC2020FR164261

PATIENT
  Sex: Female
  Weight: 1.19 kg

DRUGS (8)
  1. NEVIRAPINE. [Suspect]
     Active Substance: NEVIRAPINE
     Indication: FOETAL EXPOSURE DURING PREGNANCY
     Dosage: UNK
     Route: 064
  2. VIRAMUNE [Suspect]
     Active Substance: NEVIRAPINE
     Indication: FOETAL EXPOSURE DURING PREGNANCY
     Dosage: MATERNAL DOSE: 400 MG, QD
     Route: 064
     Dates: start: 20050620
  3. KALETRA [Suspect]
     Active Substance: LOPINAVIR\RITONAVIR
     Indication: FOETAL EXPOSURE DURING PREGNANCY
     Dosage: MATERNAL DOSE: UNK
     Route: 064
     Dates: start: 20050908
  4. EMTRICITABINE [Suspect]
     Active Substance: EMTRICITABINE
     Indication: FOETAL EXPOSURE DURING PREGNANCY
     Dosage: MATERNAL DOSE: 200 MG, QD
     Route: 064
     Dates: start: 20050523
  5. SUSTIVA [Suspect]
     Active Substance: EFAVIRENZ
     Indication: FOETAL EXPOSURE DURING PREGNANCY
     Dosage: MATERNAL DOSE: 600 MG, QD
     Route: 064
     Dates: start: 20050523, end: 20050908
  6. VIDEX [Suspect]
     Active Substance: DIDANOSINE
     Indication: FOETAL EXPOSURE DURING PREGNANCY
     Dosage: MATERNAL DOSE: UNK
     Route: 064
     Dates: start: 20050523, end: 20050908
  7. COMBIVIR [Suspect]
     Active Substance: LAMIVUDINE\ZIDOVUDINE
     Indication: FOETAL EXPOSURE DURING PREGNANCY
     Dosage: MATERNAL DOSE:200 MG, QD
     Route: 064
     Dates: start: 20050908
  8. VIRAMUNE [Suspect]
     Active Substance: NEVIRAPINE
     Dosage: MATERNAL DOSE: 400 MG, QD
     Route: 064
     Dates: start: 20050704

REACTIONS (11)
  - Spina bifida [Fatal]
  - Brain herniation [Fatal]
  - Encephalocele [Fatal]
  - Neural tube defect [Fatal]
  - Arnold-Chiari malformation [Not Recovered/Not Resolved]
  - Meningomyelocele [Fatal]
  - Foetal malformation [Not Recovered/Not Resolved]
  - Congenital hydrocephalus [Fatal]
  - Anencephaly [Fatal]
  - Spinocerebellar disorder [Fatal]
  - Foetal exposure during pregnancy [Recovered/Resolved]

NARRATIVE: CASE EVENT DATE: 20050813
